FAERS Safety Report 8244814-9 (Version None)
Quarter: 2012Q1

REPORT INFORMATION
  Report Type: 
  Country: None (occurrence: None)
  Receive Date: 20120329
  Receipt Date: 20110505
  Transmission Date: 20120608
  Serious: No
  Sender: FDA-Public Use
  Company Number: US-MYLANLABS-2011S1009498

PATIENT
  Sex: Female

DRUGS (2)
  1. FENTANYL-100 [Suspect]
     Indication: PAIN
     Dosage: Q3D
     Route: 062
     Dates: start: 20110503
  2. NORCO [Concomitant]

REACTIONS (4)
  - SUICIDAL IDEATION [None]
  - NERVOUSNESS [None]
  - MEMORY IMPAIRMENT [None]
  - ANXIETY [None]
